FAERS Safety Report 25863917 (Version 1)
Quarter: 2025Q3

REPORT INFORMATION
  Report Type: Spontaneous
  Country: US (occurrence: US)
  Receive Date: 20250930
  Receipt Date: 20250930
  Transmission Date: 20251020
  Serious: No
  Sender: SECURA BIO
  Company Number: US-SECURA BIO, INC.-SECUR-2025-US002066

PATIENT
  Sex: Male

DRUGS (2)
  1. COPIKTRA [Suspect]
     Active Substance: DUVELISIB
     Indication: Prolymphocytic leukaemia
     Dosage: 42 MILLIGRAM, QD
     Route: 048
  2. COPIKTRA [Suspect]
     Active Substance: DUVELISIB
     Dosage: 25 MILLIGRAM, BID
     Route: 048

REACTIONS (6)
  - Pain [Unknown]
  - Asthenia [Unknown]
  - Insomnia [Unknown]
  - Fatigue [Unknown]
  - Back pain [Unknown]
  - Incorrect dose administered [Unknown]
